FAERS Safety Report 8233418-X (Version None)
Quarter: 2012Q1

REPORT INFORMATION
  Report Type: 
  Country: None (occurrence: None)
  Receive Date: 20120326
  Receipt Date: 20120315
  Transmission Date: 20120608
  Serious: Yes (Other)
  Sender: FDA-Public Use
  Company Number: US-CELGENEUS-163-20785-12031867

PATIENT
  Sex: Male
  Weight: 85.5 kg

DRUGS (7)
  1. DEXAMETHASONE [Concomitant]
     Dosage: 4 MILLIGRAM
     Route: 065
  2. PHOSLO [Concomitant]
     Dosage: 667 MILLIGRAM
     Route: 065
  3. ZOFRAN [Concomitant]
     Indication: NAUSEA
     Dosage: 4 MILLIGRAM
     Route: 065
  4. OXYCONTIN [Concomitant]
     Indication: BACK PAIN
     Dosage: 10 MILLIGRAM
     Route: 065
  5. VITAMIN B COMPLEX CAP [Concomitant]
     Dosage: 1
     Route: 065
  6. THALOMID [Suspect]
     Indication: MULTIPLE MYELOMA
     Dosage: 100 MILLIGRAM
     Route: 048
     Dates: start: 20110919, end: 20120308
  7. LEVOTHYROXINE SODIUM [Concomitant]
     Indication: HYPOTHYROIDISM
     Dosage: .5 MICROGRAM
     Route: 065

REACTIONS (1)
  - NEPHROPATHY TOXIC [None]
